FAERS Safety Report 6771999-3 (Version None)
Quarter: 2010Q2

REPORT INFORMATION
  Report Type: 
  Country: None (occurrence: None)
  Receive Date: 20100616
  Receipt Date: 20100316
  Transmission Date: 20101027
  Serious: No
  Sender: FDA-Public Use
  Company Number: US-ASTRAZENECA-2010SE11452

PATIENT
  Age: 51 Year
  Sex: Female

DRUGS (12)
  1. RHINOCORT [Suspect]
     Indication: MULTIPLE ALLERGIES
     Route: 045
  2. CYMBALTA [Concomitant]
  3. SYNTHROID [Concomitant]
  4. SANCTURA SR [Concomitant]
  5. VITAMINS [Concomitant]
  6. DIOVAN [Concomitant]
  7. GENERIC PLACQUINIL [Concomitant]
  8. PREDNISONE [Concomitant]
  9. ASACOL [Concomitant]
  10. GENERIC DARVOCET N 100 [Concomitant]
  11. GENERIC SOMA [Concomitant]
  12. VOLTARIN GEL 1% [Concomitant]

REACTIONS (1)
  - LIMB INJURY [None]
